FAERS Safety Report 4342179-6 (Version None)
Quarter: 2004Q1

REPORT INFORMATION
  Report Type: 
  Country: None (occurrence: None)
  Receive Date: 20040329
  Receipt Date: 20031204
  Transmission Date: 20041129
  Serious: No
  Sender: FDA-Public Use
  Company Number: USA031254003

PATIENT
  Age: 32 Year
  Sex: Male
  Weight: 89 kg

DRUGS (2)
  1. STRATTERA [Suspect]
     Indication: ATTENTION DEFICIT/HYPERACTIVITY DISORDER
     Dosage: 80 MG/DAY
  2. ADVIL [Concomitant]

REACTIONS (2)
  - ANXIETY [None]
  - DYSPEPSIA [None]
